FAERS Safety Report 9607541 (Version 1)
Quarter: 2013Q4

REPORT INFORMATION
  Report Type: Spontaneous
  Country: US (occurrence: None)
  Receive Date: 20131007
  Receipt Date: 20131007
  Transmission Date: 20140711
  Serious: Yes (Death, Hospitalization)
  Sender: FDA-Public Use
  Company Number: IPC201309-000378

PATIENT
  Age: 2 Month
  Sex: Male
  Weight: 1.6 kg

DRUGS (3)
  1. FUROSEMIDE [Suspect]
  2. CHLOROTHIAZIDE [Suspect]
  3. ENALAPRIL [Suspect]
     Route: 048

REACTIONS (4)
  - Renal failure acute [None]
  - Hypotension [None]
  - Pulmonary hypertension [None]
  - Respiratory failure [None]
